FAERS Safety Report 5241581-8 (Version None)
Quarter: 2007Q1

REPORT INFORMATION
  Report Type: 
  Country: None (occurrence: None)
  Receive Date: 20070220
  Receipt Date: 20070207
  Transmission Date: 20070707
  Serious: Yes (Other)
  Sender: FDA-Public Use
  Company Number: CA-AVENTIS-200621499GDDC

PATIENT
  Age: 72 Year
  Sex: Female
  Weight: 77 kg

DRUGS (3)
  1. FLAGYL [Suspect]
     Route: 048
     Dates: start: 20020222, end: 20020224
  2. LEVOFLOXACIN [Suspect]
     Route: 048
     Dates: start: 20020215, end: 20020222
  3. CLINDAMYCIN [Concomitant]
     Route: 042
     Dates: start: 20020215, end: 20020221

REACTIONS (1)
  - PETECHIAE [None]
